FAERS Safety Report 11047506 (Version 6)
Quarter: 2016Q2

REPORT INFORMATION
  Report Type: Report from Study
  Country: BR (occurrence: BR)
  Receive Date: 20150420
  Receipt Date: 20160530
  Transmission Date: 20160815
  Serious: Yes (Other)
  Sender: FDA-Public Use
  Company Number: PHHY2015BR043973

PATIENT
  Sex: Female
  Weight: 51 kg

DRUGS (4)
  1. FOLIC ACID. [Concomitant]
     Active Substance: FOLIC ACID
     Indication: SICKLE CELL ANAEMIA
     Dosage: 1 DF, QD
     Route: 048
  2. HYDREA [Suspect]
     Active Substance: HYDROXYUREA
     Indication: PRODUCT USED FOR UNKNOWN INDICATION
     Route: 065
  3. OMEPRAZOLE. [Concomitant]
     Active Substance: OMEPRAZOLE
     Indication: PRODUCT USED FOR UNKNOWN INDICATION
     Dosage: 1 DF, QD
     Route: 048
  4. EXJADE [Suspect]
     Active Substance: DEFERASIROX
     Indication: SICKLE CELL ANAEMIA
     Dosage: 2000 MG (IN STRENGTH OF 500 MG AND 250 MG) (40 MG/KG), QD
     Route: 048

REACTIONS (15)
  - Lung disorder [Recovering/Resolving]
  - Abasia [Unknown]
  - Mental impairment [Unknown]
  - Bone disorder [Not Recovered/Not Resolved]
  - Serum ferritin increased [Not Recovered/Not Resolved]
  - Cardiac disorder [Recovering/Resolving]
  - Pain in extremity [Unknown]
  - Cholelithiasis [Not Recovered/Not Resolved]
  - Wrong technique in product usage process [Unknown]
  - Abdominal distension [Not Recovered/Not Resolved]
  - Spleen disorder [Not Recovered/Not Resolved]
  - Anxiety [Not Recovered/Not Resolved]
  - Amnesia [Unknown]
  - Arthropathy [Recovering/Resolving]
  - Aphasia [Unknown]
